FAERS Safety Report 7817239-5 (Version None)
Quarter: 2011Q4

REPORT INFORMATION
  Report Type: 
  Country: None (occurrence: None)
  Receive Date: 20111017
  Receipt Date: 20111013
  Transmission Date: 20120403
  Serious: Yes (Death)
  Sender: FDA-Public Use
  Company Number: PHHY2011PL80668

PATIENT
  Sex: Female

DRUGS (1)
  1. LETROZOLE [Suspect]
     Dates: start: 20070217

REACTIONS (1)
  - CARDIAC DEATH [None]
